FAERS Safety Report 14989245 (Version 2)
Quarter: 2018Q2

REPORT INFORMATION
  Report Type: Spontaneous
  Country: BR (occurrence: BR)
  Receive Date: 20180608
  Receipt Date: 20180614
  Transmission Date: 20180711
  Serious: No
  Sender: FDA-Public Use
  Company Number: BR-009507513-1805BRA014628

PATIENT
  Age: 59 Year
  Sex: Female
  Weight: 63.5 kg

DRUGS (6)
  1. PROPRANOLOL HYDROCHLORIDE. [Concomitant]
     Active Substance: PROPRANOLOL HYDROCHLORIDE
     Indication: HYPERTENSION
     Dosage: 1 DF, 1 TABLET IN THE MORNING
     Route: 048
     Dates: start: 2009
  2. JANUMET [Suspect]
     Active Substance: METFORMIN HYDROCHLORIDE\SITAGLIPTIN PHOSPHATE
     Indication: TYPE 2 DIABETES MELLITUS
     Dosage: 1 DF, 1 TABLET AFTER LUNCH
     Route: 048
     Dates: start: 20180528
  3. HYDROCHLOROTHIAZIDE. [Concomitant]
     Active Substance: HYDROCHLOROTHIAZIDE
     Indication: HYPERTENSION
     Dosage: 1 DF, 1 TABLET IN THE MORNING
     Route: 048
     Dates: start: 2009
  4. LIPANON [Concomitant]
     Active Substance: FENOFIBRATE
     Indication: BLOOD TRIGLYCERIDES INCREASED
     Dosage: 1 DF, 1 TABLET AFTER LUNCH
     Route: 048
     Dates: start: 2012
  5. JANUMET XR [Suspect]
     Active Substance: METFORMIN HYDROCHLORIDE\SITAGLIPTIN PHOSPHATE
     Indication: TYPE 2 DIABETES MELLITUS
     Dosage: 1 DF, 1 TABLET AFTER LUNCH AND 1 TABLET AFTER DINNER
     Route: 048
     Dates: start: 201803, end: 2018
  6. JANUMET XR [Suspect]
     Active Substance: METFORMIN HYDROCHLORIDE\SITAGLIPTIN PHOSPHATE
     Dosage: 50/1000 MG, 1 TABLET AFTER LUNCH AND 1 TABLET AFTER DINNER
     Route: 048
     Dates: start: 2018, end: 2018

REACTIONS (2)
  - Blood glucose increased [Unknown]
  - Wrong drug administered [Unknown]

NARRATIVE: CASE EVENT DATE: 20180528
